FAERS Safety Report 13362488 (Version 1)
Quarter: 2017Q1

REPORT INFORMATION
  Report Type: Spontaneous
  Country: US (occurrence: US)
  Receive Date: 20170323
  Receipt Date: 20170323
  Transmission Date: 20170429
  Serious: No
  Sender: FDA-Public Use
  Company Number: US-PFIZER INC-2017118602

PATIENT
  Sex: Female

DRUGS (1)
  1. XELJANZ [Suspect]
     Active Substance: TOFACITINIB CITRATE
     Dosage: 5 MG, UNK

REACTIONS (21)
  - Heart rate irregular [Unknown]
  - Psoriasis [Unknown]
  - Muscular weakness [Unknown]
  - Headache [Unknown]
  - Back pain [Unknown]
  - Vision blurred [Unknown]
  - Dry mouth [Unknown]
  - Nasal congestion [Unknown]
  - Balance disorder [Unknown]
  - Arthralgia [Unknown]
  - Sexual dysfunction [Unknown]
  - Memory impairment [Unknown]
  - Alopecia [Unknown]
  - Musculoskeletal stiffness [Unknown]
  - Lymphadenitis [Unknown]
  - Fatigue [Unknown]
  - Constipation [Unknown]
  - Decreased appetite [Unknown]
  - Urticaria [Unknown]
  - Swelling [Unknown]
  - Neck pain [Unknown]
